FAERS Safety Report 7535075 (Version 6)
Quarter: 2020Q3

REPORT INFORMATION
  Report Type: Report from Study
  Country: DE (occurrence: DE)
  Receive Date: 20100810
  Receipt Date: 20180716
  Transmission Date: 20201104
  Serious: Yes (Hospitalization)
  Sender: FDA-Public Use
  Company Number: DE-ROCHE-718882

PATIENT
  Age: 39 Year
  Sex: Female
  Weight: 63 kg

DRUGS (15)
  1. BEVACIZUMAB. [Suspect]
     Active Substance: BEVACIZUMAB
     Indication: BREAST CANCER
     Dosage: THIRD CYCLE
     Route: 042
  2. BEVACIZUMAB. [Suspect]
     Active Substance: BEVACIZUMAB
     Route: 042
     Dates: start: 20100505, end: 20100616
  3. DOCETAXEL. [Suspect]
     Active Substance: DOCETAXEL
     Indication: BREAST CANCER METASTATIC
     Dosage: CYCLES 1 AND 2
     Route: 042
  4. DOCETAXEL. [Suspect]
     Active Substance: DOCETAXEL
     Dosage: FURTHER DOSE TAKEN ON DATES 26/MAY/2010, 16/JUN/2010, 07/JUL/2010, 28/JUL/2010, 18/AUG/2010
     Route: 042
  5. BEVACIZUMAB. [Suspect]
     Active Substance: BEVACIZUMAB
     Indication: BREAST CANCER METASTATIC
     Dosage: CYCLES 1 AND 2
     Route: 042
  6. GRANOZYTE [Concomitant]
     Dosage: 34MIO IU
     Route: 065
     Dates: start: 20100623, end: 20100623
  7. CIPROFLOXACIN. [Concomitant]
     Active Substance: CIPROFLOXACIN
     Indication: INFECTION
     Route: 065
     Dates: start: 20100514, end: 20100524
  8. BISOPROLOL [Concomitant]
     Active Substance: BISOPROLOL
     Indication: TACHYCARDIA
     Route: 048
     Dates: start: 20101222
  9. IBANDRONIC ACID. [Suspect]
     Active Substance: IBANDRONIC ACID
     Dosage: THIRD CYCLE
     Route: 042
  10. GRANOZYTE [Concomitant]
     Dosage: 34MIO IU
     Route: 065
     Dates: start: 20100713, end: 20100714
  11. CIPROFLOXACIN. [Concomitant]
     Active Substance: CIPROFLOXACIN
     Indication: EAR PAIN
     Route: 065
     Dates: start: 20100601, end: 20100611
  12. IBANDRONIC ACID. [Suspect]
     Active Substance: IBANDRONIC ACID
     Indication: METASTASES TO BONE
     Dosage: CYCLES 1 AND 2
     Route: 042
  13. GRANOZYTE [Concomitant]
     Indication: LEUKOPENIA
     Dosage: 34MIO IU
     Route: 065
     Dates: start: 20100602, end: 20100603
  14. DOCETAXEL. [Suspect]
     Active Substance: DOCETAXEL
     Indication: BREAST CANCER
     Dosage: CYCLE 3
     Route: 042
  15. IBUPROFEN. [Concomitant]
     Active Substance: IBUPROFEN
     Indication: BONE PAIN
     Route: 048
     Dates: start: 20101106

REACTIONS (2)
  - Epistaxis [Recovered/Resolved]
  - Anaemia [Recovered/Resolved]

NARRATIVE: CASE EVENT DATE: 20100629
